FAERS Safety Report 11259101 (Version 1)
Quarter: 2015Q2

REPORT INFORMATION
  Report Type: Spontaneous
  Country: US (occurrence: None)
  Receive Date: 20150617
  Receipt Date: 20150617
  Transmission Date: 20150821
  Serious: No
  Sender: FDA-Public Use
  Company Number: 2014TASUS000576

PATIENT
  Age: 50 Year
  Sex: Female

DRUGS (7)
  1. OXYCODONE (OXYCODONE HYDROCHLORIDE) (OXYCODONE) [Concomitant]
     Active Substance: OXYCODONE
  2. SEROQUEL [Concomitant]
     Active Substance: QUETIAPINE FUMARATE
  3. PRAVASTATIN (PRAVASTATIN SODIUM) [Concomitant]
  4. DOXEPIN (DOXEPIN HYDROCHLORIDE) [Concomitant]
  5. MELOXICAM. [Concomitant]
     Active Substance: MELOXICAM
  6. TRAZODONE [Concomitant]
     Active Substance: TRAZODONE HYDROCHLORIDE
  7. HETLIOZ [Suspect]
     Active Substance: TASIMELTEON
     Indication: CIRCADIAN RHYTHM SLEEP DISORDER
     Route: 048
     Dates: start: 20141025

REACTIONS (1)
  - Abnormal dreams [None]

NARRATIVE: CASE EVENT DATE: 201411
